FAERS Safety Report 24216051 (Version 1)
Quarter: 2024Q3

REPORT INFORMATION
  Report Type: Report from Study
  Country: TW (occurrence: None)
  Receive Date: 20240816
  Receipt Date: 20240816
  Transmission Date: 20241017
  Serious: Yes (Other)
  Sender: ASTRAZENECA
  Company Number: 2022A238902

PATIENT
  Age: 71 Year
  Sex: Male

DRUGS (1)
  1. IMFINZI [Suspect]
     Active Substance: DURVALUMAB
     Dosage: 1560.0MG UNKNOWN
     Route: 042
     Dates: start: 20220512

REACTIONS (2)
  - Cytokine storm [Unknown]
  - Laboratory test abnormal [Unknown]
